FAERS Safety Report 24064473 (Version 1)
Quarter: 2024Q3

REPORT INFORMATION
  Report Type: Other
  Country: US (occurrence: US)
  Receive Date: 20240709
  Receipt Date: 20240709
  Transmission Date: 20241016
  Serious: Yes (Other)
  Sender: PRASCO
  Company Number: US-Prasco Laboratories-PRAS20241009

PATIENT
  Age: 60 Year
  Sex: Male

DRUGS (1)
  1. DEXAMETHASONE [Suspect]
     Active Substance: DEXAMETHASONE
     Indication: Uveitis
     Dosage: UNK

REACTIONS (5)
  - Cytomegalovirus chorioretinitis [Recovering/Resolving]
  - Uveitis [Recovering/Resolving]
  - Retinal occlusive vasculitis [Recovering/Resolving]
  - Eye inflammation [Recovering/Resolving]
  - Visual acuity reduced [Recovering/Resolving]
